FAERS Safety Report 5449797-2 (Version None)
Quarter: 2007Q3

REPORT INFORMATION
  Report Type: 
  Country: None (occurrence: None)
  Receive Date: 20070910
  Receipt Date: 20070903
  Transmission Date: 20080115
  Serious: Yes (Death, Life-Threatening, Hospitalization, Other)
  Sender: FDA-Public Use
  Company Number: 2007SP010230

PATIENT
  Sex: Female
  Weight: 68 kg

DRUGS (7)
  1. TEMODAL [Suspect]
     Indication: GLIOBLASTOMA
     Dosage: ;QD;PO
     Route: 048
     Dates: start: 20070319, end: 20070518
  2. DEXAMETHASONE TAB [Suspect]
     Indication: BRAIN OEDEMA
     Dosage: 4 MG;QD;PO; 4MG;TID
     Route: 048
     Dates: start: 20070301, end: 20070520
  3. DEXAMETHASONE TAB [Suspect]
     Indication: BRAIN OEDEMA
     Dosage: 4 MG;QD;PO; 4MG;TID
     Route: 048
     Dates: start: 20070520, end: 20070522
  4. GRANISETRON  HCL [Concomitant]
  5. VALPROATE SODIUM [Concomitant]
  6. OMEPRAZOLE [Concomitant]
  7. FUROSEMIDE [Concomitant]

REACTIONS (9)
  - BLOOD POTASSIUM DECREASED [None]
  - BLOOD UREA [None]
  - C-REACTIVE PROTEIN INCREASED [None]
  - DEHYDRATION [None]
  - DISTURBANCE IN ATTENTION [None]
  - LEUKOPENIA [None]
  - PNEUMONIA STREPTOCOCCAL [None]
  - SEPSIS [None]
  - URINARY TRACT INFECTION [None]
